FAERS Safety Report 23782817 (Version 1)
Quarter: 2024Q2

REPORT INFORMATION
  Report Type: Spontaneous
  Country: US (occurrence: None)
  Receive Date: 20240424
  Receipt Date: 20240424
  Transmission Date: 20240716
  Serious: No
  Sender: FDA-Public Use
  Company Number: None

PATIENT
  Age: 74 Year
  Sex: Female
  Weight: 88.9 kg

DRUGS (1)
  1. ENBREL [Suspect]
     Active Substance: BENZYL ALCOHOL\ETANERCEPT
     Indication: Rheumatoid arthritis
     Dosage: INJECT 25MG (0.5ML) SUBCUTANEOUSLY  TWO TIMES A WEEK .. - 96 HOURS APART  AS DIRECTED??UNREADABLE
     Route: 058
     Dates: start: 202312

REACTIONS (2)
  - Asthenia [None]
  - Therapy interrupted [None]
